FAERS Safety Report 15551879 (Version 2)
Quarter: 2019Q3

REPORT INFORMATION
  Report Type: Spontaneous
  Country: DO (occurrence: DO)
  Receive Date: 20181025
  Receipt Date: 20190711
  Transmission Date: 20191004
  Serious: Yes (Other)
  Sender: FDA-Public Use
  Company Number: DO-BAYER-2018-195624

PATIENT
  Age: 82 Year

DRUGS (1)
  1. ADEMPAS [Suspect]
     Active Substance: RIOCIGUAT
     Dosage: 1 MG, QD
     Route: 048
     Dates: start: 20181010, end: 20181017

REACTIONS (3)
  - Syncope [Recovered/Resolved]
  - Dyspnoea [None]
  - Blood glucose decreased [None]

NARRATIVE: CASE EVENT DATE: 20181017
